FAERS Safety Report 4455148-2 (Version None)
Quarter: 2004Q3

REPORT INFORMATION
  Report Type: 
  Country: None (occurrence: None)
  Receive Date: 20040917
  Receipt Date: 20040902
  Transmission Date: 20050211
  Serious: Yes (Hospitalization, Other)
  Sender: FDA-Public Use
  Company Number: 2003-06025

PATIENT
  Age: 29 Year
  Sex: Female
  Weight: 54.2048 kg

DRUGS (15)
  1. TENOFOVIR DF (TENOFOVIR DISOPROXIL FUMARATE) [Suspect]
     Indication: HIV INFECTION
     Dosage: 300 MG, 1 IN 1 D, ORAL
     Route: 048
     Dates: start: 20030730, end: 20030817
  2. EFAVIRENZ (EFAVIRENZ) [Concomitant]
  3. 3TC (LAMIVUDINE) [Concomitant]
  4. DAPSONE [Concomitant]
  5. NAPROSYN [Concomitant]
  6. DARBEPOETIN (DARBEPOETIN ALFA) [Concomitant]
  7. ZITHROMAX [Concomitant]
  8. VALTREX [Concomitant]
  9. TYLENOL [Concomitant]
  10. DIFLUCAN [Concomitant]
  11. RIFAMPICIN [Concomitant]
  12. ISONIAZID [Concomitant]
  13. PYRAZINAMIDE [Concomitant]
  14. ETHAMBUTOL HCL (ETHAMBUTOL) [Concomitant]
  15. VITAMIN B6 [Concomitant]

REACTIONS (36)
  - ANAEMIA [None]
  - ATYPICAL MYCOBACTERIAL LYMPHADENITIS [None]
  - CHOLESTASIS [None]
  - CYTOMEGALOVIRUS CHORIORETINITIS [None]
  - DECREASED APPETITE [None]
  - GALLOP RHYTHM PRESENT [None]
  - GENERALISED OEDEMA [None]
  - HAEMOLYTIC URAEMIC SYNDROME [None]
  - HEPATITIS [None]
  - HEPATORENAL SYNDROME [None]
  - HERPES SIMPLEX [None]
  - HYPOVOLAEMIA [None]
  - IMMUNE RECONSTITUTION SYNDROME [None]
  - INTRAVASCULAR HAEMOLYSIS [None]
  - IRON DEFICIENCY [None]
  - JAUNDICE [None]
  - LOCALISED OEDEMA [None]
  - LOOSE STOOLS [None]
  - LYMPHADENOPATHY [None]
  - NEPHROPATHY [None]
  - NEPHROPATHY TOXIC [None]
  - OEDEMA PERIPHERAL [None]
  - ORAL CANDIDIASIS [None]
  - PNEUMOCYSTIS CARINII PNEUMONIA [None]
  - PNEUMONIA [None]
  - PULMONARY TUBERCULOSIS [None]
  - PYREXIA [None]
  - RENAL FAILURE ACUTE [None]
  - RENAL TUBULAR NECROSIS [None]
  - SPLENOMEGALY [None]
  - SWELLING FACE [None]
  - TACHYCARDIA [None]
  - THROMBOTIC THROMBOCYTOPENIC PURPURA [None]
  - UVEITIS [None]
  - VENOUS PRESSURE JUGULAR INCREASED [None]
  - VITREOUS FLOATERS [None]
